FAERS Safety Report 13012390 (Version 2)
Quarter: 2017Q1

REPORT INFORMATION
  Report Type: Spontaneous
  Country: US (occurrence: US)
  Receive Date: 20161209
  Receipt Date: 20170327
  Transmission Date: 20170428
  Serious: No
  Sender: FDA-Public Use
  Company Number: US-PFIZER INC-2016565698

PATIENT
  Age: 60 Year
  Sex: Female
  Weight: 89.34 kg

DRUGS (7)
  1. TOPAMAX [Concomitant]
     Active Substance: TOPIRAMATE
     Indication: MUSCLE SPASMS
     Dosage: 25 MG, 2X/DAY
     Route: 048
  2. AVINZA [Suspect]
     Active Substance: MORPHINE SULFATE
     Indication: PAIN
     Dosage: UNK, 60MG/90MG
  3. BACLOFEN. [Concomitant]
     Active Substance: BACLOFEN
     Indication: SURGERY
     Dosage: 10 MG, 2X/DAY
     Route: 048
     Dates: start: 2000
  4. LEVSIN [Concomitant]
     Active Substance: HYOSCYAMINE SULFATE
     Indication: ABDOMINAL PAIN UPPER
     Dosage: 25 MG, AS NEEDED
     Route: 048
     Dates: start: 2000
  5. DOXYCYCLINE. [Concomitant]
     Active Substance: DOXYCYCLINE
     Indication: SKIN DISORDER
     Dosage: 100 MG, 2X/DAY
     Route: 048
     Dates: start: 199411
  6. AVINZA [Suspect]
     Active Substance: MORPHINE SULFATE
     Indication: SYMPATHETIC NERVE DESTRUCTION
     Dosage: 90 MG, 1X/DAY
     Route: 048
     Dates: end: 2016
  7. DIAZEPAM. [Concomitant]
     Active Substance: DIAZEPAM
     Indication: MUSCLE SPASMS
     Dosage: 10 MG, 3X/DAY
     Route: 048
     Dates: start: 199411

REACTIONS (1)
  - Weight increased [Unknown]
